FAERS Safety Report 14279827 (Version 1)
Quarter: 2017Q4

REPORT INFORMATION
  Report Type: Spontaneous
  Country: US (occurrence: US)
  Receive Date: 20171212
  Receipt Date: 20171212
  Transmission Date: 20180321
  Serious: Yes (Hospitalization)
  Sender: FDA-Public Use
  Company Number: US-NOVOPROD-575714

PATIENT
  Age: 46 Year
  Sex: Female

DRUGS (1)
  1. NOVOLIN 70/30 [Suspect]
     Active Substance: INSULIN HUMAN
     Indication: TYPE 2 DIABETES MELLITUS
     Dosage: 130 U, QD AT BEDTIME SOMETIMES
     Route: 058
     Dates: end: 201710

REACTIONS (5)
  - Glycosylated haemoglobin increased [Unknown]
  - Coronary artery occlusion [Unknown]
  - Myelitis transverse [Not Recovered/Not Resolved]
  - Viral infection [Recovered/Resolved]
  - Blood glucose increased [Recovered/Resolved]

NARRATIVE: CASE EVENT DATE: 2012
